FAERS Safety Report 9522505 (Version 1)
Quarter: 2013Q1

REPORT INFORMATION
  Report Type: Spontaneous
  Country: US (occurrence: None)
  Receive Date: 20130305
  Receipt Date: 20130305
  Transmission Date: 20140127
  Serious: Yes (Other)
  Sender: FDA-Public Use
  Company Number: 163-21880-12063809

PATIENT
  Age: 62 Year
  Sex: Female

DRUGS (8)
  1. REVLIMID (LENALIDOMIDE) (CAPSULES) [Suspect]
     Indication: MYELODYSPLASTIC SYNDROME
     Dosage: 5 MG, 1 IN 1 D, PO
     Route: 048
     Dates: start: 20120510, end: 20120618
  2. PLAVIX (CLOPIDOGREL SULFATE) (UNKNOWN) [Concomitant]
  3. HYDROXYZINE (HYDROXYZINE) (UNKNOWN) [Concomitant]
  4. ASA (ACETYLSALICYLIC ACID) (UNKNOWN) [Concomitant]
  5. TOPROL XL (METOPROLOL SUCCINATE) (UNKNOWN) [Concomitant]
  6. PRAVACHOL (PRAVASTATIN SODIUM) (UNKNOWN) [Concomitant]
  7. LISINOPRIL (LISINOPRIL) (UNKNOWN) [Concomitant]
  8. NIACIN (NICOTINIC ACID) (UNKNOWN) [Concomitant]

REACTIONS (1)
  - Tremor [None]
